FAERS Safety Report 6249470-7 (Version None)
Quarter: 2009Q2

REPORT INFORMATION
  Report Type: 
  Country: None (occurrence: None)
  Receive Date: 20090629
  Receipt Date: 20090619
  Transmission Date: 20091009
  Serious: Yes (Death)
  Sender: FDA-Public Use
  Company Number: A0793995A

PATIENT
  Age: 41 Year
  Sex: Male

DRUGS (6)
  1. LAMICTAL [Suspect]
  2. COCAINE [Suspect]
  3. BUPRENORPHINE HCL [Suspect]
  4. SEROQUEL [Suspect]
  5. PROZAC [Suspect]
  6. AFRIN [Concomitant]

REACTIONS (2)
  - ACCIDENT [None]
  - INJURY [None]
